FAERS Safety Report 7654967-9 (Version None)
Quarter: 2011Q3

REPORT INFORMATION
  Report Type: 
  Country: None (occurrence: None)
  Receive Date: 20110804
  Receipt Date: 20110725
  Transmission Date: 20111222
  Serious: Yes (Disabling)
  Sender: FDA-Public Use
  Company Number: PHFR2011GB02906

PATIENT
  Sex: Male

DRUGS (3)
  1. CLOZAPINE [Suspect]
     Indication: SCHIZOPHRENIA
     Dosage: 150 MG, DAILY
     Route: 048
     Dates: start: 20100913, end: 20110421
  2. OMEPRAZOLE [Concomitant]
     Indication: GASTRITIS
     Dosage: 20 MG, DAILY
     Route: 048
  3. PROPRANOLOL [Concomitant]
     Indication: TACHYCARDIA
     Dosage: 20 MG, DAILY
     Route: 048
     Dates: start: 20100901, end: 20110301

REACTIONS (3)
  - OBESITY [None]
  - SALIVARY HYPERSECRETION [None]
  - WEIGHT INCREASED [None]
